FAERS Safety Report 7863858-X (Version None)
Quarter: 2011Q4

REPORT INFORMATION
  Report Type: 
  Country: None (occurrence: None)
  Receive Date: 20111028
  Receipt Date: 20111017
  Transmission Date: 20120403
  Serious: No
  Sender: FDA-Public Use
  Company Number: US-BIOGENIDEC-2011BI027865

PATIENT
  Sex: Female

DRUGS (1)
  1. TYSABRI [Suspect]
     Indication: MULTIPLE SCLEROSIS
     Route: 042
     Dates: start: 20110709, end: 20110906

REACTIONS (5)
  - DYSPNOEA [None]
  - URTICARIA [None]
  - HYPERSENSITIVITY [None]
  - UNDERDOSE [None]
  - FLUSHING [None]
